FAERS Safety Report 21806278 (Version 1)
Quarter: 2023Q1

REPORT INFORMATION
  Report Type: Spontaneous
  Country: US (occurrence: US)
  Receive Date: 20230102
  Receipt Date: 20230102
  Transmission Date: 20230418
  Serious: No
  Sender: FDA-Public Use
  Company Number: US-SA-SAC20230102000188

PATIENT
  Age: 76 Year
  Sex: Female

DRUGS (1)
  1. DUPIXENT [Suspect]
     Active Substance: DUPILUMAB
     Indication: Asthma
     Dosage: 300 MG, QOW (300 MG/2ML: INJECT 1 PEN UNDER THE SKIN EVERY 14 DAYS)
     Route: 058
     Dates: start: 20211203

REACTIONS (3)
  - COVID-19 [Not Recovered/Not Resolved]
  - Impaired quality of life [Unknown]
  - Eye irritation [Not Recovered/Not Resolved]

NARRATIVE: CASE EVENT DATE: 20221201
